FAERS Safety Report 8129986-9 (Version None)
Quarter: 2012Q1

REPORT INFORMATION
  Report Type: 
  Country: None (occurrence: None)
  Receive Date: 20120210
  Receipt Date: 20120202
  Transmission Date: 20120608
  Serious: Yes (Hospitalization, Other)
  Sender: FDA-Public Use
  Company Number: US-ABBOTT-11P-163-0869708-00

PATIENT
  Age: 26 Year
  Sex: Female

DRUGS (2)
  1. HUMIRA [Suspect]
     Indication: RHEUMATOID ARTHRITIS
     Dates: end: 20110901
  2. METHOTREXATE [Concomitant]
     Indication: RHEUMATOID ARTHRITIS

REACTIONS (9)
  - MUSCULAR WEAKNESS [None]
  - EYELID FUNCTION DISORDER [None]
  - DOUBLE STRANDED DNA ANTIBODY POSITIVE [None]
  - MILLER FISHER SYNDROME [None]
  - DIPLEGIA [None]
  - NERVOUS SYSTEM DISORDER [None]
  - PROTEINURIA [None]
  - GUILLAIN-BARRE SYNDROME [None]
  - LUPUS NEPHRITIS [None]
